FAERS Safety Report 20154213 (Version 2)
Quarter: 2022Q1

REPORT INFORMATION
  Report Type: Spontaneous
  Country: US (occurrence: US)
  Receive Date: 20211207
  Receipt Date: 20220202
  Transmission Date: 20220424
  Serious: No
  Sender: FDA-Public Use
  Company Number: US-CELGENE-USA-20211108019

PATIENT
  Sex: Female
  Weight: 63.560 kg

DRUGS (4)
  1. LENALIDOMIDE [Suspect]
     Active Substance: LENALIDOMIDE
     Indication: Plasma cell myeloma
     Dosage: 21 DAYS ON, 7 DAYS OFF
     Route: 048
     Dates: start: 201410
  2. LENALIDOMIDE [Suspect]
     Active Substance: LENALIDOMIDE
     Dosage: 21 DAYS ON, 7 DAYS OFF
     Route: 048
     Dates: start: 201601
  3. LENALIDOMIDE [Suspect]
     Active Substance: LENALIDOMIDE
     Dosage: 21 DAYS ON, 7 DAYS OFF
     Route: 048
     Dates: start: 202105
  4. LENALIDOMIDE [Suspect]
     Active Substance: LENALIDOMIDE
     Dosage: 21 DAYS ON, 7 DAYS OFF
     Route: 048
     Dates: start: 202106

REACTIONS (2)
  - Muscle spasms [Unknown]
  - Constipation [Unknown]
